FAERS Safety Report 8608826-5 (Version None)
Quarter: 2012Q3

REPORT INFORMATION
  Report Type: 
  Country: None (occurrence: None)
  Receive Date: 20120821
  Receipt Date: 20120807
  Transmission Date: 20120928
  Serious: Yes (Hospitalization, Other)
  Sender: FDA-Public Use
  Company Number: AU-ROCHE-1100807

PATIENT

DRUGS (3)
  1. PEGINTERFERON ALFA-2B [Suspect]
     Indication: HEPATITIS C
  2. PEGASYS [Suspect]
     Indication: HEPATITIS C
  3. COPEGUS [Suspect]
     Indication: HEPATITIS C

REACTIONS (8)
  - PANCYTOPENIA [None]
  - RHEUMATOID ARTHRITIS [None]
  - RESPIRATORY DISORDER [None]
  - PSYCHIATRIC SYMPTOM [None]
  - SKIN DISORDER [None]
  - ENDOCRINE DISORDER [None]
  - INFECTION [None]
  - NEUTROPENIA [None]
